FAERS Safety Report 26034872 (Version 1)
Quarter: 2025Q4

REPORT INFORMATION
  Report Type: Spontaneous
  Country: US (occurrence: None)
  Receive Date: 20251112
  Receipt Date: 20251112
  Transmission Date: 20260117
  Serious: Yes (Other)
  Sender: FDA-CTU
  Company Number: None

PATIENT
  Age: 76 Year
  Sex: Female

DRUGS (2)
  1. LENALIDOMIDE [Suspect]
     Active Substance: LENALIDOMIDE
     Dosage: FREQUENCY : DAILY;?
  2. NINLARO [Suspect]
     Active Substance: IXAZOMIB CITRATE
     Dosage: FREQUENCY : WEEKLY;?

REACTIONS (2)
  - Breast cancer female [None]
  - Therapy interrupted [None]
